FAERS Safety Report 10056329 (Version 1)
Quarter: 2014Q2

REPORT INFORMATION
  Report Type: Spontaneous
  Country: IN (occurrence: None)
  Receive Date: 20140401
  Receipt Date: 20140401
  Transmission Date: 20141212
  Serious: Yes (Other)
  Sender: FDA-Public Use
  Company Number: FK201401050

PATIENT
  Age: 30 Year
  Sex: Male

DRUGS (7)
  1. CYTARABINE [Suspect]
     Indication: PLASMABLASTIC LYMPHOMA
  2. CYCLOPHOSPHAMIDE (CYCLOPHOSPHAMIDE) [Concomitant]
  3. VINCRISTINE (VINCRISTINE) [Concomitant]
  4. DOXORUBICIN (DOXORUBICIN) [Concomitant]
  5. METHOTREXATE (METHOTREXATE) [Concomitant]
  6. IFOSFAMIDE (IFOSFAMIDE) [Concomitant]
  7. CISPLATIN (CISPLATIN) [Concomitant]

REACTIONS (2)
  - Sensory loss [None]
  - Convulsion [None]
